FAERS Safety Report 10278553 (Version 1)
Quarter: 2014Q3

REPORT INFORMATION
  Report Type: Report from Study
  Country: AR (occurrence: AR)
  Receive Date: 20140704
  Receipt Date: 20140704
  Transmission Date: 20150326
  Serious: Yes (Other)
  Sender: FDA-Public Use
  Company Number: PHHY2014AR082655

PATIENT
  Sex: Female

DRUGS (1)
  1. DIOVAN [Suspect]
     Active Substance: VALSARTAN
     Indication: HYPERTENSION
     Dosage: 1 DF (160 MG), PER DAY
     Route: 048

REACTIONS (4)
  - Pain [Unknown]
  - Deafness unilateral [Unknown]
  - Hearing impaired [Unknown]
  - Gait disturbance [Unknown]
